FAERS Safety Report 8574716-X (Version None)
Quarter: 2012Q3

REPORT INFORMATION
  Report Type: 
  Country: None (occurrence: None)
  Receive Date: 20120807
  Receipt Date: 20120726
  Transmission Date: 20120928
  Serious: Yes (Hospitalization)
  Sender: FDA-Public Use
  Company Number: US-BIOGENIDEC-2012BI028065

PATIENT
  Age: 41 Year
  Sex: Female

DRUGS (1)
  1. TYSABRI [Suspect]
     Indication: MULTIPLE SCLEROSIS
     Route: 042
     Dates: start: 20090520, end: 20120330

REACTIONS (5)
  - REHABILITATION THERAPY [None]
  - PAIN IN EXTREMITY [None]
  - WEIGHT DECREASED [None]
  - MULTIPLE SCLEROSIS [None]
  - JOINT DISLOCATION [None]
